FAERS Safety Report 6861471-4 (Version None)
Quarter: 2010Q3

REPORT INFORMATION
  Report Type: 
  Country: None (occurrence: None)
  Receive Date: 20100715
  Receipt Date: 20100707
  Transmission Date: 20110219
  Serious: Yes (Hospitalization)
  Sender: FDA-Public Use
  Company Number: 2010EU003218

PATIENT
  Age: 55 Year
  Sex: Female
  Weight: 68 kg

DRUGS (3)
  1. SOLIFENACIN SUCCINATE (VESICARE) [Suspect]
     Indication: NEUROGENIC BLADDER
     Dosage: ORAL
     Route: 048
     Dates: start: 20100603
  2. BETAFERON [Concomitant]
  3. CITALOPRAM HYDROBROMIDE [Concomitant]

REACTIONS (2)
  - IMPAIRED HEALING [None]
  - WRIST FRACTURE [None]
